FAERS Safety Report 16333557 (Version 1)
Quarter: 2019Q2

REPORT INFORMATION
  Report Type: Spontaneous
  Country: US (occurrence: US)
  Receive Date: 20190520
  Receipt Date: 20190520
  Transmission Date: 20190711
  Serious: No
  Sender: FDA-Public Use
  Company Number: US-UPSHER-SMITH LABORATORIES, LLC-2019USL00141

PATIENT
  Age: 56 Year
  Sex: Female
  Weight: 81.63 kg

DRUGS (9)
  1. KLOR-CON [Suspect]
     Active Substance: POTASSIUM CHLORIDE
     Dosage: 10 MEQ, 1X/DAY
     Route: 048
     Dates: start: 2018, end: 20190206
  2. CALCIUM [Concomitant]
     Active Substance: CALCIUM
  3. KLOR-CON [Suspect]
     Active Substance: POTASSIUM CHLORIDE
     Indication: BLOOD POTASSIUM DECREASED
     Dosage: ^A HIGHER DOSE^
     Route: 048
  4. REVLIMID [Concomitant]
     Active Substance: LENALIDOMIDE
  5. ZOMETA [Concomitant]
     Active Substance: ZOLEDRONIC ACID
  6. VITAMIN B [Concomitant]
     Active Substance: VITAMIN B
  7. PROBIOTICS [Concomitant]
     Active Substance: PROBIOTICS NOS
  8. KLOR-CON [Suspect]
     Active Substance: POTASSIUM CHLORIDE
     Dosage: 10 MEQ, 1X/DAY
     Route: 048
     Dates: start: 2018, end: 201810
  9. XARELTO [Concomitant]
     Active Substance: RIVAROXABAN

REACTIONS (1)
  - Peripheral swelling [Recovering/Resolving]

NARRATIVE: CASE EVENT DATE: 201811
